FAERS Safety Report 22238316 (Version 1)
Quarter: 2023Q2

REPORT INFORMATION
  Report Type: Spontaneous
  Country: CA (occurrence: CA)
  Receive Date: 20230421
  Receipt Date: 20230421
  Transmission Date: 20230721
  Serious: Yes (Other)
  Sender: FDA-Public Use
  Company Number: CA-STRIDES ARCOLAB LIMITED-2023SP005614

PATIENT
  Age: 38 Year
  Sex: Female

DRUGS (8)
  1. METHYLPHENIDATE [Suspect]
     Active Substance: METHYLPHENIDATE
     Indication: Attention deficit hyperactivity disorder
     Dosage: 117 MILLIGRAM PER DAY (OFF LABEL DOSING; FORMULATION: OSMOTIC-RELEASE ORAL SYSTEM) (72MG IN THE MORN
     Route: 048
  2. METHYLPHENIDATE [Suspect]
     Active Substance: METHYLPHENIDATE
     Dosage: UNK
     Route: 065
  3. METHYLPHENIDATE [Suspect]
     Active Substance: METHYLPHENIDATE
     Dosage: 117 MILLIGRAM PER DAY
     Route: 065
  4. LISDEXAMFETAMINE [Suspect]
     Active Substance: LISDEXAMFETAMINE
     Indication: Attention deficit hyperactivity disorder
     Dosage: 40 MILLIGRAM PER DAY (INITIAL)
     Route: 065
  5. LISDEXAMFETAMINE [Suspect]
     Active Substance: LISDEXAMFETAMINE
     Dosage: 50 MILLIGRAM PER DAY (ADDITION OF MIDDAY DOSE OF 10MG)
     Route: 065
  6. LISDEXAMFETAMINE [Suspect]
     Active Substance: LISDEXAMFETAMINE
     Dosage: 110 MILLIGRAM PER DAY (70MG IN THE MORNING, 20MG AT 11AM AND 20MG IN MID-AFTERNOON OFF LABEL DOSING)
     Route: 065
  7. LISDEXAMFETAMINE [Suspect]
     Active Substance: LISDEXAMFETAMINE
     Dosage: UNK
     Route: 065
  8. LISDEXAMFETAMINE [Suspect]
     Active Substance: LISDEXAMFETAMINE
     Dosage: 110 MILLIGRAM PER DAY
     Route: 065

REACTIONS (1)
  - Drug tolerance [Unknown]
